FAERS Safety Report 21963307 (Version 1)
Quarter: 2023Q1

REPORT INFORMATION
  Report Type: Spontaneous
  Country: CH (occurrence: CH)
  Receive Date: 20230207
  Receipt Date: 20230207
  Transmission Date: 20230417
  Serious: Yes (Hospitalization)
  Sender: FDA-Public Use
  Company Number: CH-NAPPMUNDI-GBR-2023-0104837

PATIENT
  Age: 2 Day
  Sex: Female
  Weight: 3.58 kg

DRUGS (9)
  1. MORPHINE [Suspect]
     Active Substance: MORPHINE
     Indication: Product used for unknown indication
     Dosage: IN TOTAL,AT 6 AM: 15 MG
     Route: 063
     Dates: start: 20221104, end: 20221104
  2. MORPHINE [Suspect]
     Active Substance: MORPHINE
     Dosage: IN TOTAL, AT 10 AM: 20 MG
     Route: 063
     Dates: start: 20221104, end: 20221104
  3. MORPHINE [Suspect]
     Active Substance: MORPHINE
     Dosage: IN TOTAL, AT 2PM: 20 MG
     Route: 063
     Dates: start: 20221104, end: 20221104
  4. MORPHINE [Suspect]
     Active Substance: MORPHINE
     Dosage: IN TOTAL, AT 4PM: 20 MG
     Route: 063
     Dates: start: 20221104, end: 20221104
  5. MORPHINE [Suspect]
     Active Substance: MORPHINE
     Dosage: IN TOTAL, AT 9:30 PM: 20 MG
     Route: 063
     Dates: start: 20221104, end: 20221104
  6. MORPHINE [Suspect]
     Active Substance: MORPHINE
     Dosage: IN TOTAL, AT 2AM: 20 MG
     Route: 063
     Dates: start: 20221105, end: 20221105
  7. MORPHINE [Suspect]
     Active Substance: MORPHINE
     Dosage: IN TOTAL, AT 6AM: 20 MG
     Route: 063
     Dates: start: 20221105, end: 20221105
  8. DAFALGAN [Concomitant]
     Active Substance: ACETAMINOPHEN
     Indication: Product used for unknown indication
     Dosage: 1G 4X/DAY
     Route: 063
     Dates: start: 20221104
  9. IBUPROFEN [Concomitant]
     Active Substance: IBUPROFEN
     Indication: Product used for unknown indication
     Dosage: 600MG 3X/DAY
     Route: 063
     Dates: start: 20221104

REACTIONS (2)
  - Apathy [Recovered/Resolved]
  - Tremor [Recovered/Resolved]

NARRATIVE: CASE EVENT DATE: 20221105
